FAERS Safety Report 7798397-8 (Version None)
Quarter: 2011Q4

REPORT INFORMATION
  Report Type: 
  Country: None (occurrence: None)
  Receive Date: 20111005
  Receipt Date: 20110705
  Transmission Date: 20120403
  Serious: No
  Sender: FDA-Public Use
  Company Number: US-BAYER-2011-058290

PATIENT
  Age: 57 Year
  Sex: Male

DRUGS (2)
  1. LEVITRA [Suspect]
     Indication: ERECTILE DYSFUNCTION
     Dosage: 20 MG, UNK 1 OR 2 TIMES PER WEEK
     Route: 048
  2. DILAUDID [Concomitant]

REACTIONS (2)
  - DRUG EFFECT PROLONGED [None]
  - DRUG INEFFECTIVE [None]
